FAERS Safety Report 5977653-X (Version None)
Quarter: 2008Q4

REPORT INFORMATION
  Report Type: 
  Country: None (occurrence: None)
  Receive Date: 20081201
  Receipt Date: 20081201
  Transmission Date: 20090506
  Serious: Yes (Other)
  Sender: FDA-Public Use
  Company Number: None

PATIENT
  Age: 53 Year
  Sex: Female
  Weight: 63.5036 kg

DRUGS (1)
  1. RETIN-A [Suspect]
     Indication: SKIN WRINKLING
     Dosage: PEA SIZED DROP 1 PER DAY TOP
     Route: 061
     Dates: start: 20050201, end: 20081101

REACTIONS (4)
  - ALCOHOL INTOLERANCE [None]
  - HEADACHE [None]
  - NAUSEA [None]
  - VOMITING [None]
